FAERS Safety Report 22120421 (Version 2)
Quarter: 2023Q2

REPORT INFORMATION
  Report Type: Spontaneous
  Country: SA (occurrence: SA)
  Receive Date: 20230321
  Receipt Date: 20230610
  Transmission Date: 20230721
  Serious: Yes (Other)
  Sender: FDA-Public Use
  Company Number: SA-002147023-NVSC2023SA061048

PATIENT
  Age: 28 Year

DRUGS (1)
  1. ADAKVEO [Suspect]
     Active Substance: CRIZANLIZUMAB-TMCA
     Indication: Sickle cell anaemia with crisis
     Dosage: 200 MG (AROUND 7 MONTHS) (6 DOSES) (OVER 30MINS)
     Route: 042
     Dates: end: 202211

REACTIONS (2)
  - Multiple sclerosis [Recovering/Resolving]
  - Hypoaesthesia oral [Recovering/Resolving]
